FAERS Safety Report 5286354-5 (Version None)
Quarter: 2007Q1

REPORT INFORMATION
  Report Type: 
  Country: None (occurrence: None)
  Receive Date: 20070116
  Receipt Date: 20061021
  Transmission Date: 20070707
  Serious: No
  Sender: FDA-Public Use
  Company Number: 2006SP003777

PATIENT
  Age: 47 Year
  Sex: Female
  Weight: 90.7194 kg

DRUGS (13)
  1. LUNESTA [Suspect]
     Indication: INSOMNIA
     Dosage: 2 MG; 1X; ORAL
     Route: 048
     Dates: start: 20061020, end: 20061020
  2. ZANAFLEX [Concomitant]
  3. TOPAMAX [Concomitant]
  4. PERCOCET [Concomitant]
  5. ZOLOFT [Concomitant]
  6. PREDNISONE TAB [Concomitant]
  7. ALLEGRA [Concomitant]
  8. NEXIUM [Concomitant]
  9. HYDROCHLOROTHIAZIDE [Concomitant]
  10. VITAMIN B-12 [Concomitant]
  11. CYMBALTA [Concomitant]
  12. PROMETHAZINE HCL [Concomitant]
  13. RIZATRIPTAN BENZOATE [Concomitant]

REACTIONS (2)
  - DRUG INEFFECTIVE [None]
  - INSOMNIA [None]
